FAERS Safety Report 14590533 (Version 1)
Quarter: 2018Q1

REPORT INFORMATION
  Report Type: Spontaneous
  Country: IL (occurrence: IL)
  Receive Date: 20180302
  Receipt Date: 20180302
  Transmission Date: 20180509
  Serious: Yes (Other)
  Sender: FDA-Public Use
  Company Number: PHHY2018IL032316

PATIENT
  Sex: Female

DRUGS (1)
  1. LAMISIL [Suspect]
     Active Substance: TERBINAFINE HYDROCHLORIDE
     Indication: FUNGAL SKIN INFECTION
     Dosage: UNK
     Route: 065
     Dates: start: 200509

REACTIONS (13)
  - Fatigue [Unknown]
  - Myalgia [Unknown]
  - Scar [Unknown]
  - Generalised oedema [Unknown]
  - Thermal burn [Unknown]
  - Pain [Unknown]
  - Quality of life decreased [Unknown]
  - Choking [Unknown]
  - Wound [Unknown]
  - Hypersensitivity [Unknown]
  - Cough [Unknown]
  - Rash generalised [Unknown]
  - Psoriasis [Unknown]
